FAERS Safety Report 7297003-9 (Version None)
Quarter: 2011Q1

REPORT INFORMATION
  Report Type: 
  Country: None (occurrence: None)
  Receive Date: 20110216
  Receipt Date: 20110201
  Transmission Date: 20110831
  Serious: No
  Sender: FDA-Public Use
  Company Number: US-DENTSPLY-2011-0013-EUR

PATIENT
  Age: 25 Year
  Sex: Female
  Weight: 63.56 kg

DRUGS (1)
  1. NUPRO ALL-SOLUTIONS NEUTRAL SODIUM FLUORIDE ORAL SOLUTIONS [Suspect]

REACTIONS (2)
  - VOMITING [None]
  - DEHYDRATION [None]
